FAERS Safety Report 5907958-X (Version None)
Quarter: 2008Q4

REPORT INFORMATION
  Report Type: 
  Country: None (occurrence: None)
  Receive Date: 20081003
  Receipt Date: 20080930
  Transmission Date: 20090506
  Serious: Yes (Hospitalization, Other)
  Sender: FDA-Public Use
  Company Number: FR-GENENTECH-256879

PATIENT
  Sex: Male

DRUGS (17)
  1. EFALIZUMAB [Suspect]
     Indication: PSORIASIS
     Dosage: 1 ML, 1/WEEK
     Route: 058
     Dates: start: 20061001, end: 20080210
  2. EFALIZUMAB [Suspect]
     Dosage: 1 ML, 1/WEEK
     Route: 058
     Dates: start: 20080326, end: 20080401
  3. EFALIZUMAB [Suspect]
     Dosage: 1 ML, 1/WEEK
     Route: 058
     Dates: start: 20080401, end: 20080805
  4. EFALIZUMAB [Suspect]
     Dosage: 1 ML, 1/WEEK
     Route: 058
  5. GLIBOMET [Concomitant]
     Indication: DIABETES MELLITUS
     Dosage: 2 TABLET, TID
     Route: 048
     Dates: start: 20050101
  6. FUROSEMIDE [Concomitant]
     Indication: HYPERTENSION
     Dosage: 1 UNK, QD
     Route: 048
     Dates: start: 19940401
  7. PRAVASTATIN [Concomitant]
     Indication: HYPERTRIGLYCERIDAEMIA
     Dosage: UNK, UNK
     Dates: start: 19940401
  8. PRAVASTATIN [Concomitant]
     Indication: THROMBOSIS PROPHYLAXIS
  9. INSULIN GLARGINE [Concomitant]
     Indication: DIABETES MELLITUS
     Dosage: 1 UNK, QD
     Dates: start: 19940401
  10. PLAVIX [Concomitant]
     Indication: PROPHYLAXIS
     Dosage: 1 UNK, QD
     Route: 048
     Dates: start: 19940401
  11. VERAPAMIL HYDROCHLORIDE [Concomitant]
     Indication: PROPHYLAXIS
     Dosage: 1 UNK, QD
     Route: 048
     Dates: start: 19940401
  12. RAMIPRIL [Concomitant]
     Indication: HYPERTENSION
     Dosage: 10 MG, QD
     Route: 048
     Dates: start: 19940401
  13. BISOPROLOL FUMARATE [Concomitant]
     Indication: HYPERTENSION
     Dosage: UNK
     Route: 048
     Dates: start: 20080201
  14. INSULIN LISPRO [Concomitant]
     Indication: DIABETES MELLITUS
     Dosage: UNK
     Route: 058
     Dates: start: 20080201
  15. OMEGA-3 MARINE TRIGLYCERIDES [Concomitant]
     Indication: ANGINA PECTORIS
     Dosage: UNK
     Route: 048
     Dates: start: 20080201
  16. ATORVASTATIN CALCIUM [Concomitant]
     Indication: HYPERCHOLESTEROLAEMIA
     Dosage: UNK
     Route: 048
     Dates: start: 20080201
  17. KARDEGIC [Concomitant]
     Indication: THROMBOSIS PROPHYLAXIS
     Dosage: UNK
     Route: 048
     Dates: start: 20080201

REACTIONS (2)
  - ANGINA PECTORIS [None]
  - PULMONARY OEDEMA [None]
